FAERS Safety Report 16297524 (Version 1)
Quarter: 2019Q2

REPORT INFORMATION
  Report Type: Spontaneous
  Country: US (occurrence: US)
  Receive Date: 20190510
  Receipt Date: 20190510
  Transmission Date: 20190711
  Serious: Yes (Other)
  Sender: FDA-Public Use
  Company Number: US-STRIDES ARCOLAB LIMITED-2019SP003895

PATIENT
  Age: 80 Year
  Sex: Male

DRUGS (5)
  1. LITHIUM. [Concomitant]
     Active Substance: LITHIUM
     Indication: BIPOLAR DISORDER
     Dosage: UNK
     Route: 065
  2. MEMANTINE. [Suspect]
     Active Substance: MEMANTINE
     Indication: BIPOLAR DISORDER
     Dosage: UNK
     Route: 065
  3. MEMANTINE. [Suspect]
     Active Substance: MEMANTINE
     Indication: DEMENTIA
  4. VALPROIC ACID. [Suspect]
     Active Substance: VALPROIC ACID
     Indication: DEMENTIA
  5. VALPROIC ACID. [Suspect]
     Active Substance: VALPROIC ACID
     Indication: BIPOLAR DISORDER
     Dosage: UNK
     Route: 065

REACTIONS (2)
  - Condition aggravated [Unknown]
  - Cognitive disorder [Unknown]
